FAERS Safety Report 13761447 (Version 1)
Quarter: 2017Q3

REPORT INFORMATION
  Report Type: Other
  Country: US (occurrence: US)
  Receive Date: 20170717
  Receipt Date: 20170717
  Transmission Date: 20171127
  Serious: Yes (Other)
  Sender: FDA-Public Use
  Company Number: US-THE PROACTIV LLC-2023428

PATIENT
  Age: 20 Year
  Sex: Female

DRUGS (12)
  1. GABAPENTIN. [Concomitant]
     Active Substance: GABAPENTIN
  2. PROACTIV CLARIFYING NIGHT ACNE TREATMENT [Suspect]
     Active Substance: SALICYLIC ACID
     Route: 061
     Dates: start: 20170406, end: 20170410
  3. PROACTIV SOLUTION OIL FREE MOISTURE SPF 15 MOISTURIZER [Suspect]
     Active Substance: OCTINOXATE\ZINC OXIDE
     Route: 061
     Dates: start: 20170406, end: 20170410
  4. BUSPAR [Concomitant]
     Active Substance: BUSPIRONE HYDROCHLORIDE
  5. PROACTIVPLUS SKIN SMOOTHING EXFOLIATOR [Suspect]
     Active Substance: BENZOYL PEROXIDE
     Indication: ACNE
     Route: 061
     Dates: start: 20170406, end: 20170410
  6. LITHIUM. [Concomitant]
     Active Substance: LITHIUM
  7. GASX [Concomitant]
  8. BIRTH CONTROL [Concomitant]
     Active Substance: UNSPECIFIED INGREDIENT
  9. PROACTIV PLUS COMPLEXION PERFECTING HYDRATOR [Suspect]
     Active Substance: SALICYLIC ACID
     Route: 061
     Dates: start: 20170406, end: 20170410
  10. PROBIOTICS [Concomitant]
     Active Substance: PROBIOTICS NOS
  11. PROACTIV PLUS PORE TARGETING TREATMENT [Suspect]
     Active Substance: BENZOYL PEROXIDE
     Route: 061
     Dates: start: 20170406, end: 20170410
  12. WELLBUTRIN XL [Concomitant]
     Active Substance: BUPROPION HYDROCHLORIDE

REACTIONS (2)
  - Throat tightness [Recovered/Resolved]
  - Dyspnoea [Recovered/Resolved]

NARRATIVE: CASE EVENT DATE: 20170410
